FAERS Safety Report 5671418-4 (Version None)
Quarter: 2008Q1

REPORT INFORMATION
  Report Type: 
  Country: None (occurrence: None)
  Receive Date: 20080318
  Receipt Date: 20080307
  Transmission Date: 20080703
  Serious: Yes (Other)
  Sender: FDA-Public Use
  Company Number: US-PFIZER INC-2008022148

PATIENT

DRUGS (1)
  1. TIKOSYN [Suspect]

REACTIONS (2)
  - PLEURAL EFFUSION [None]
  - PLEURISY [None]
